FAERS Safety Report 4700662-5 (Version None)
Quarter: 2005Q2

REPORT INFORMATION
  Report Type: 
  Country: None (occurrence: None)
  Receive Date: 20050627
  Receipt Date: 20041021
  Transmission Date: 20051028
  Serious: Yes (Life-Threatening, Hospitalization, Disabling)
  Sender: FDA-Public Use
  Company Number: DE-MERCK-0410DEU00659

PATIENT
  Age: 56 Year
  Sex: Female
  Weight: 59 kg

DRUGS (8)
  1. VIOXX [Suspect]
     Indication: ARTHROPATHY
     Route: 048
     Dates: start: 20000322, end: 20000601
  2. VIOXX [Suspect]
     Route: 048
     Dates: start: 20000701, end: 20020502
  3. METOPROLOL TARTRATE [Concomitant]
     Indication: SINUS TACHYCARDIA
     Route: 048
     Dates: start: 20000402
  4. TOLPERISONE HYDROCHLORIDE [Concomitant]
     Indication: FIBROMYALGIA
     Route: 048
     Dates: start: 19990501
  5. AMITRIPTYLINE HYDROCHLORIDE [Concomitant]
     Indication: FIBROMYALGIA
     Route: 048
     Dates: start: 19990501
  6. PANTOPRAZOLE SODIUM [Concomitant]
     Indication: GASTRITIS
     Route: 048
     Dates: start: 20000324
  7. NONSTEROIDAL ANTI-INFLAMMATORY DRUG (UNSPECIFIED) [Concomitant]
     Route: 065
  8. CITALOPRAM HYDROBROMIDE [Concomitant]
     Route: 065
     Dates: start: 20020423

REACTIONS (14)
  - ABDOMINAL PAIN UPPER [None]
  - CARDIAC DISORDER [None]
  - DEPRESSED MOOD [None]
  - GASTRIC ULCER [None]
  - GASTRIC ULCER HAEMORRHAGE [None]
  - GASTRITIS [None]
  - HELICOBACTER PYLORI IDENTIFICATION TEST POSITIVE [None]
  - INADEQUATE ANALGESIA [None]
  - MYOCARDIAL INFARCTION [None]
  - REFLUX OESOPHAGITIS [None]
  - SINUS TACHYCARDIA [None]
  - SYNCOPE [None]
  - THERAPEUTIC RESPONSE DECREASED [None]
  - THERAPY NON-RESPONDER [None]
